FAERS Safety Report 12079610 (Version 1)
Quarter: 2016Q1

REPORT INFORMATION
  Report Type: Spontaneous
  Country: US (occurrence: US)
  Receive Date: 20160216
  Receipt Date: 20160216
  Transmission Date: 20160526
  Serious: No
  Sender: FDA-Public Use
  Company Number: US-PFIZER INC-2016069416

PATIENT
  Age: 17 Month
  Sex: Female

DRUGS (1)
  1. INFANTS ADVIL CONCENTRATED DROPS [Suspect]
     Active Substance: IBUPROFEN
     Dosage: 1.875 ML, UNK

REACTIONS (2)
  - Vomiting [Unknown]
  - Incorrect product storage [Unknown]
